FAERS Safety Report 5494960-8 (Version None)
Quarter: 2007Q4

REPORT INFORMATION
  Report Type: 
  Country: None (occurrence: None)
  Receive Date: 20071024
  Receipt Date: 20071018
  Transmission Date: 20080405
  Serious: Yes (Hospitalization)
  Sender: FDA-Public Use
  Company Number: B0490007A

PATIENT
  Age: 18 Year
  Sex: Female
  Weight: 67 kg

DRUGS (2)
  1. PAXIL [Suspect]
     Indication: PANIC ATTACK
     Dosage: 10MG PER DAY
     Route: 048
     Dates: start: 20070301, end: 20071001
  2. ORAP [Concomitant]
     Indication: AUTISM
     Dosage: 1MG PER DAY
     Route: 048
     Dates: start: 20050601

REACTIONS (5)
  - BLOOD CREATINE PHOSPHOKINASE INCREASED [None]
  - DIZZINESS [None]
  - DRUG INTERACTION [None]
  - MYALGIA [None]
  - VIRAL INFECTION [None]
